FAERS Safety Report 8682314 (Version 3)
Quarter: 2012Q4

REPORT INFORMATION
  Report Type: 
  Country: BR (occurrence: BR)
  Receive Date: 20120725
  Receipt Date: 20121115
  Transmission Date: 20130627
  Serious: Yes (Hospitalization)
  Sender: FDA-Public Use
  Company Number: BR-BAYER-2012-073952

PATIENT
  Sex: Female

DRUGS (4)
  1. ULTRAVIST [Suspect]
     Indication: CT SCAN
     Dosage: UNK
     Route: 042
  2. ULTRAVIST [Suspect]
     Indication: CT SCAN
  3. ULTRAVIST [Suspect]
     Indication: CT SCAN
  4. POLARAMINE [Concomitant]
     Indication: ALLERGY PROPHYLAXIS

REACTIONS (10)
  - Dyspnoea [None]
  - Laryngeal oedema [None]
  - Skin plaque [None]
  - Dyspnoea [None]
  - Cough [None]
  - Dizziness [None]
  - Hypoaesthesia [None]
  - Headache [None]
  - Abdominal pain [None]
  - Vomiting [None]
